FAERS Safety Report 15570212 (Version 1)
Quarter: 2018Q4

REPORT INFORMATION
  Report Type: Spontaneous
  Country: US (occurrence: US)
  Receive Date: 20181031
  Receipt Date: 20181031
  Transmission Date: 20190205
  Serious: Yes (Other)
  Sender: FDA-Public Use
  Company Number: US-MALLINCKRODT-T201804649

PATIENT
  Age: 6 Month
  Sex: Female
  Weight: 9 kg

DRUGS (1)
  1. H.P. ACTHAR [Suspect]
     Active Substance: CORTICOTROPIN
     Indication: INFANTILE SPASMS
     Dosage: 60 U (150 U/M2), TWICE DAILY
     Route: 030
     Dates: start: 20181003

REACTIONS (3)
  - Drug ineffective [Unknown]
  - Condition aggravated [Unknown]
  - Infantile spasms [Unknown]

NARRATIVE: CASE EVENT DATE: 201810
